FAERS Safety Report 10225693 (Version 6)
Quarter: 2016Q2

REPORT INFORMATION
  Report Type: Spontaneous
  Country: US (occurrence: US)
  Receive Date: 20140609
  Receipt Date: 20160413
  Transmission Date: 20160815
  Serious: Yes (Other)
  Sender: FDA-Public Use
  Company Number: US-ASTELLAS-2013US008411

PATIENT
  Age: 70 Year
  Sex: Male

DRUGS (4)
  1. PROGRAF [Suspect]
     Active Substance: TACROLIMUS\TACROLIMUS ANHYDROUS
     Indication: PROSTATE CANCER
     Dosage: UNK, UNKNOWN FREQ.
     Route: 065
     Dates: start: 20010801
  2. PROGRAF [Suspect]
     Active Substance: TACROLIMUS\TACROLIMUS ANHYDROUS
     Indication: HEART TRANSPLANT
     Dosage: 2MG AM, 1MG PM, TWICE DAILY
     Route: 048
     Dates: start: 20080708
  3. PROGRAF [Suspect]
     Active Substance: TACROLIMUS\TACROLIMUS ANHYDROUS
     Indication: PROPHYLAXIS
     Route: 048
  4. PROGRAF [Suspect]
     Active Substance: TACROLIMUS\TACROLIMUS ANHYDROUS
     Indication: OVERDOSE

REACTIONS (5)
  - Blood urea increased [Unknown]
  - Heart transplant rejection [Unknown]
  - Renal failure [Unknown]
  - Arteriosclerosis [Unknown]
  - Off label use [Unknown]

NARRATIVE: CASE EVENT DATE: 201406
